FAERS Safety Report 14488639 (Version 6)
Quarter: 2018Q1

REPORT INFORMATION
  Report Type: Report from Study
  Country: US (occurrence: US)
  Receive Date: 20180205
  Receipt Date: 20180330
  Transmission Date: 20180509
  Serious: Yes (Death, Other)
  Sender: FDA-Public Use
  Company Number: US-ACTELION-A-NJ2018-165819

PATIENT
  Age: 87 Year
  Sex: Female
  Weight: 43.84 kg

DRUGS (4)
  1. OPSUMIT [Suspect]
     Active Substance: MACITENTAN
     Indication: PULMONARY ARTERIAL HYPERTENSION
     Dosage: 10 MG, QD
     Route: 048
  2. OXYGEN. [Concomitant]
     Active Substance: OXYGEN
  3. REVATIO [Concomitant]
     Active Substance: SILDENAFIL CITRATE
  4. REMODULIN [Concomitant]
     Active Substance: TREPROSTINIL

REACTIONS (16)
  - Unevaluable event [Fatal]
  - Bedridden [Unknown]
  - Pulmonary arterial hypertension [Fatal]
  - Catheter site scab [Unknown]
  - Diarrhoea [Unknown]
  - Localised oedema [Unknown]
  - Pyrexia [Unknown]
  - Influenza [Unknown]
  - Nasal congestion [Unknown]
  - Weight decreased [Unknown]
  - Pancreatic disorder [Unknown]
  - Catheter site haemorrhage [Unknown]
  - Hepatic lesion [Unknown]
  - Paracentesis [Unknown]
  - Decreased appetite [Unknown]
  - Catheter site discolouration [Unknown]

NARRATIVE: CASE EVENT DATE: 201801
